FAERS Safety Report 13587159 (Version 1)
Quarter: 2017Q2

REPORT INFORMATION
  Report Type: Spontaneous
  Country: US (occurrence: US)
  Receive Date: 20170526
  Receipt Date: 20170526
  Transmission Date: 20170830
  Serious: Yes (Other)
  Sender: FDA-Public Use
  Company Number: US-009507513-1705USA011253

PATIENT
  Age: 53 Year
  Sex: Female

DRUGS (2)
  1. ZEMURON [Suspect]
     Active Substance: ROCURONIUM BROMIDE
     Indication: INDUCTION OF ANAESTHESIA
     Dosage: 30 MG, ONCE
     Dates: start: 20170519, end: 20170519
  2. BRIDION [Suspect]
     Active Substance: SUGAMMADEX
     Indication: NEUROMUSCULAR BLOCKADE REVERSAL
     Dosage: 4 MG/KG, ONCE
     Dates: start: 20170519, end: 20170519

REACTIONS (2)
  - Anaphylactic reaction [Recovered/Resolved]
  - Procedural hypertension [Recovered/Resolved]

NARRATIVE: CASE EVENT DATE: 20170519
